FAERS Safety Report 16712226 (Version 3)
Quarter: 2021Q4

REPORT INFORMATION
  Report Type: Spontaneous
  Country: FR (occurrence: FR)
  Receive Date: 20190816
  Receipt Date: 20211228
  Transmission Date: 20220303
  Serious: Yes (Other)
  Sender: FDA-Public Use
  Company Number: PHHY2019FR187806

PATIENT
  Age: 20 Year
  Sex: Male

DRUGS (13)
  1. LEVOFLOXACIN [Suspect]
     Active Substance: LEVOFLOXACIN
     Indication: Klebsiella infection
     Dosage: 250/500/750 MG CONCENTRATION PRESCRIBED FOR 6 WEEKS
     Route: 048
  2. LEVOFLOXACIN [Suspect]
     Active Substance: LEVOFLOXACIN
     Indication: Proteus infection
  3. VANCOMYCIN [Concomitant]
     Active Substance: VANCOMYCIN
     Indication: Proteus infection
     Dosage: 15 MG/KG (LOADING DOSE)
     Route: 042
  4. VANCOMYCIN [Concomitant]
     Active Substance: VANCOMYCIN
     Indication: Evidence based treatment
     Dosage: 30 MG/KG, QD (MAINTENANCE DOSE FOR A TOTAL OF 7 DAYS)
     Route: 042
  5. VANCOMYCIN [Concomitant]
     Active Substance: VANCOMYCIN
     Indication: Klebsiella infection
  6. GENTAMICIN [Concomitant]
     Active Substance: GENTAMICIN
     Indication: Proteus infection
     Dosage: 5 MG/KG, QD (PRESCRIBED FOR 7 DAYS)
     Route: 042
  7. GENTAMICIN [Concomitant]
     Active Substance: GENTAMICIN
     Indication: Evidence based treatment
  8. GENTAMICIN [Concomitant]
     Active Substance: GENTAMICIN
     Indication: Klebsiella infection
  9. GENTAMICIN [Concomitant]
     Active Substance: GENTAMICIN
     Indication: Antibiotic therapy
  10. CEFEPIME [Concomitant]
     Active Substance: CEFEPIME HYDROCHLORIDE
     Indication: Proteus infection
     Dosage: 2 G (LOADING DOSE)
     Route: 042
  11. CEFEPIME [Concomitant]
     Active Substance: CEFEPIME HYDROCHLORIDE
     Indication: Evidence based treatment
     Dosage: 100 MG/KG, QD (MAINTENANCE DOSE FOR A TOTAL OF 7 DAYS)
     Route: 042
  12. CEFEPIME [Concomitant]
     Active Substance: CEFEPIME HYDROCHLORIDE
     Indication: Klebsiella infection
  13. CEFEPIME [Concomitant]
     Active Substance: CEFEPIME HYDROCHLORIDE
     Indication: Antibiotic therapy

REACTIONS (3)
  - Bacillus infection [Unknown]
  - Treatment failure [Unknown]
  - Product use in unapproved indication [Unknown]
